FAERS Safety Report 25792681 (Version 1)
Quarter: 2025Q3

REPORT INFORMATION
  Report Type: Report from Study
  Country: US (occurrence: US)
  Receive Date: 20250911
  Receipt Date: 20250911
  Transmission Date: 20251020
  Serious: Yes (Hospitalization, Other)
  Sender: MALLINCKRODT
  Company Number: US-MALLINCKRODT-MNK202505463

PATIENT
  Sex: Female

DRUGS (2)
  1. CORTICOTROPIN [Suspect]
     Active Substance: CORTICOTROPIN
     Indication: Rheumatoid arthritis
  2. BENLYSTA [Concomitant]
     Active Substance: BELIMUMAB

REACTIONS (10)
  - Cataract [Unknown]
  - Seizure [Unknown]
  - Arthropathy [Unknown]
  - Musculoskeletal stiffness [Unknown]
  - Sensitivity to weather change [Unknown]
  - Respiratory disorder [Unknown]
  - Exposure to extreme temperature [Unknown]
  - Fatigue [Unknown]
  - Headache [Unknown]
  - Affective disorder [Unknown]
